FAERS Safety Report 21329430 (Version 1)
Quarter: 2022Q3

REPORT INFORMATION
  Report Type: Spontaneous
  Country: US (occurrence: None)
  Receive Date: 20220913
  Receipt Date: 20220913
  Transmission Date: 20221027
  Serious: Yes (Life-Threatening, Hospitalization)
  Sender: FDA-Public Use
  Company Number: None

PATIENT
  Age: 67 Year
  Sex: Male

DRUGS (1)
  1. RIVAROXABAN [Suspect]
     Active Substance: RIVAROXABAN
     Indication: Atrial fibrillation
     Dates: start: 20170403

REACTIONS (11)
  - Gastrointestinal haemorrhage [None]
  - Haemoglobin decreased [None]
  - Asthenia [None]
  - Fatigue [None]
  - Dizziness [None]
  - Dyspnoea [None]
  - Occult blood positive [None]
  - Gastritis [None]
  - Haemorrhoids [None]
  - Polyp [None]
  - Anaemia [None]

NARRATIVE: CASE EVENT DATE: 20200910
